FAERS Safety Report 18232388 (Version 1)
Quarter: 2020Q3

REPORT INFORMATION
  Report Type: Spontaneous
  Country: US (occurrence: US)
  Receive Date: 20200904
  Receipt Date: 20200904
  Transmission Date: 20201103
  Serious: Yes (Hospitalization)
  Sender: FDA-Public Use
  Company Number: None

PATIENT
  Age: 70 Year
  Sex: Male
  Weight: 104.33 kg

DRUGS (1)
  1. LENVATINIB (LENVATINIB 4MG X 15 (12MG) DAILY PKT) [Suspect]
     Active Substance: LENVATINIB
     Indication: HEPATOCELLULAR CARCINOMA
     Route: 048
     Dates: start: 20200415, end: 20200423

REACTIONS (5)
  - Nausea [None]
  - Asthenia [None]
  - Vomiting [None]
  - Ataxia [None]
  - Dizziness [None]

NARRATIVE: CASE EVENT DATE: 20200420
